FAERS Safety Report 7953833-9 (Version None)
Quarter: 2011Q4

REPORT INFORMATION
  Report Type: 
  Country: None (occurrence: None)
  Receive Date: 20111202
  Receipt Date: 20111124
  Transmission Date: 20120403
  Serious: Yes (Other)
  Sender: FDA-Public Use
  Company Number: JP-ASTELLAS-2011JP008641

PATIENT
  Age: 63 Year
  Sex: Male

DRUGS (7)
  1. ENTECAVIR [Concomitant]
     Route: 065
  2. NEUPOGEN [Concomitant]
     Route: 065
  3. GANCICLOVIR [Concomitant]
     Route: 065
  4. PROGRAF [Suspect]
     Indication: IMMUNOSUPPRESSION
     Dosage: UNK
     Route: 065
  5. HEPATITIS B IMMUNE GLOBULIN (HUMAN) [Concomitant]
     Route: 065
  6. STEROID [Concomitant]
     Route: 065
  7. STEROID [Concomitant]
     Indication: IMMUNOSUPPRESSION
     Route: 065

REACTIONS (3)
  - SEPSIS [None]
  - HISTIOCYTOSIS HAEMATOPHAGIC [None]
  - CYTOMEGALOVIRUS VIRAEMIA [None]
